FAERS Safety Report 6098020-7 (Version None)
Quarter: 2009Q1

REPORT INFORMATION
  Report Type: 
  Country: None (occurrence: None)
  Receive Date: 20090227
  Receipt Date: 20090220
  Transmission Date: 20090719
  Serious: Yes (Other)
  Sender: FDA-Public Use
  Company Number: HQWYE774203AUG04

PATIENT
  Sex: Female
  Weight: 63.56 kg

DRUGS (4)
  1. PREMPRO [Suspect]
     Indication: MENOPAUSE
     Dosage: UNKNOWN
     Dates: start: 19970101, end: 19980101
  2. ZOLOFT [Concomitant]
  3. PROVERA [Suspect]
     Dosage: UNKNOWN
     Dates: start: 19960101, end: 19970101
  4. PREMARIN [Suspect]
     Dosage: UNKNOWN
     Dates: start: 19960101, end: 19970101

REACTIONS (1)
  - BREAST CANCER METASTATIC [None]
